FAERS Safety Report 16153019 (Version 1)
Quarter: 2019Q2

REPORT INFORMATION
  Report Type: Spontaneous
  Country: AU (occurrence: AU)
  Receive Date: 20190403
  Receipt Date: 20190403
  Transmission Date: 20190711
  Serious: Yes (Other)
  Sender: FDA-Public Use
  Company Number: AU-COLGATE PALMOLIVE COMPANY-20190300909

PATIENT
  Age: 57 Year
  Sex: Female

DRUGS (4)
  1. LIGNOCAINE                         /00033401/ [Suspect]
     Active Substance: LIDOCAINE HYDROCHLORIDE
     Dosage: UNK
  2. BUPIVACAINE. [Suspect]
     Active Substance: BUPIVACAINE
     Dosage: UNK
  3. CEFAZOLIN [Suspect]
     Active Substance: CEFAZOLIN
     Dosage: UNK
  4. CHLORHEXIDINE UNSPECIFIED [Suspect]
     Active Substance: CHLORHEXIDINE
     Dosage: UNK

REACTIONS (1)
  - Anaphylactic reaction [Unknown]
